FAERS Safety Report 15626827 (Version 1)
Quarter: 2018Q4

REPORT INFORMATION
  Report Type: Other
  Country: GB (occurrence: GB)
  Receive Date: 20181116
  Receipt Date: 20181116
  Transmission Date: 20190205
  Serious: Yes (Other)
  Sender: FDA-Public Use
  Company Number: GB-GLENMARK PHARMACEUTICALS-2018GMK038249

PATIENT

DRUGS (1)
  1. GABAPENTIN. [Suspect]
     Active Substance: GABAPENTIN
     Indication: PRODUCT USED FOR UNKNOWN INDICATION
     Dosage: 900 MG, OD
     Route: 048
     Dates: start: 20180914, end: 20181025

REACTIONS (8)
  - Lethargy [Unknown]
  - Rhinorrhoea [Unknown]
  - Cough [Unknown]
  - Anxiety [Unknown]
  - Back pain [Unknown]
  - Sensory disturbance [Unknown]
  - Palpitations [Unknown]
  - Feeling abnormal [Unknown]
